FAERS Safety Report 11422835 (Version 1)
Quarter: 2015Q3

REPORT INFORMATION
  Report Type: Spontaneous
  Country: PL (occurrence: PL)
  Receive Date: 20150827
  Receipt Date: 20150827
  Transmission Date: 20151125
  Serious: Yes (Other)
  Sender: FDA-Public Use
  Company Number: PL-BAYER-2015-408072

PATIENT
  Age: 79 Year
  Sex: Male

DRUGS (3)
  1. SORAFENIB (RAF KINASE INHIBITOR) [Suspect]
     Active Substance: SORAFENIB
     Indication: GASTROINTESTINAL STROMAL CANCER
     Dosage: 400 MG, QD
  2. SORAFENIB (RAF KINASE INHIBITOR) [Suspect]
     Active Substance: SORAFENIB
     Indication: GASTROINTESTINAL STROMAL CANCER
     Dosage: 800 MG, QD
     Dates: end: 201504
  3. SORAFENIB (RAF KINASE INHIBITOR) [Suspect]
     Active Substance: SORAFENIB
     Indication: GASTROINTESTINAL STROMAL CANCER
     Dosage: 800 MG, QD
     Dates: start: 201508

REACTIONS (4)
  - Off label use [None]
  - Blood pressure increased [Recovering/Resolving]
  - Gastrointestinal stromal cancer [None]
  - Rash [Recovered/Resolved]
